FAERS Safety Report 4725329-9 (Version None)
Quarter: 2005Q3

REPORT INFORMATION
  Report Type: 
  Country: None (occurrence: None)
  Receive Date: 20050725
  Receipt Date: 20050708
  Transmission Date: 20060218
  Serious: Yes (Hospitalization)
  Sender: FDA-Public Use
  Company Number: 2005-DE-02684GD

PATIENT
  Sex: 0

DRUGS (1)
  1. NAPROXEN [Suspect]

REACTIONS (2)
  - SHOCK [None]
  - STAPHYLOCOCCAL SEPSIS [None]
